FAERS Safety Report 4307406-X (Version None)
Quarter: 2004Q1

REPORT INFORMATION
  Report Type: 
  Country: None (occurrence: None)
  Receive Date: 20040226
  Receipt Date: 20040217
  Transmission Date: 20041129
  Serious: Yes (Hospitalization)
  Sender: FDA-Public Use
  Company Number: EM2004-0046

PATIENT
  Age: 62 Year
  Sex: Male
  Weight: 80.4 kg

DRUGS (6)
  1. PROLEUKIN [Suspect]
     Indication: RENAL CELL CARCINOMA STAGE UNSPECIFIED
     Dosage: 3.6 MIU/M2, QD, SUBCUTAN.
     Route: 058
     Dates: start: 20040105, end: 20040110
  2. ZOMETA [Concomitant]
  3. METAMIZOLE (METAMIZOLE) [Concomitant]
  4. CLEXANE (HEPARIN-FRACTION, SODIUM SALT) [Concomitant]
  5. MORPHINE SULFATE [Concomitant]
  6. LACTULOSE [Concomitant]

REACTIONS (7)
  - ASCITES [None]
  - BLOOD CREATININE INCREASED [None]
  - GENERALISED OEDEMA [None]
  - MALIGNANT PLEURAL EFFUSION [None]
  - METASTASES TO LUNG [None]
  - METASTATIC RENAL CELL CARCINOMA [None]
  - NEOPLASM PROGRESSION [None]
